FAERS Safety Report 24452664 (Version 2)
Quarter: 2024Q4

REPORT INFORMATION
  Report Type: Spontaneous
  Country: US (occurrence: US)
  Receive Date: 20241017
  Receipt Date: 20241126
  Transmission Date: 20250115
  Serious: No
  Sender: SANOFI AVENTIS
  Company Number: US-SA-2024SA298690

PATIENT
  Age: 12 Year
  Sex: Female

DRUGS (1)
  1. DUPIXENT [Suspect]
     Active Substance: DUPILUMAB
     Indication: Dermatitis atopic
     Dosage: 200 MG, QOW
     Route: 058
     Dates: start: 202405

REACTIONS (6)
  - Memory impairment [Unknown]
  - Flushing [Unknown]
  - Erythema [Unknown]
  - Oropharyngeal pain [Unknown]
  - Dermatitis atopic [Unknown]
  - Rash [Unknown]

NARRATIVE: CASE EVENT DATE: 20240101
